FAERS Safety Report 22047338 (Version 1)
Quarter: 2023Q1

REPORT INFORMATION
  Report Type: Spontaneous
  Country: US (occurrence: US)
  Receive Date: 20230301
  Receipt Date: 20230301
  Transmission Date: 20230417
  Serious: Yes (Other)
  Sender: FDA-Public Use
  Company Number: US-CHI-000120

PATIENT
  Age: 69 Year
  Sex: Female

DRUGS (3)
  1. FULVESTRANT [Suspect]
     Active Substance: FULVESTRANT
     Indication: Breast cancer
     Route: 030
     Dates: start: 20230216
  2. XGEVA [Concomitant]
     Active Substance: DENOSUMAB
     Dates: start: 202008
  3. FULVESTRANT [Suspect]
     Active Substance: FULVESTRANT
     Indication: Breast cancer
     Route: 030
     Dates: start: 20201120

REACTIONS (6)
  - Cough [Unknown]
  - Oropharyngeal discomfort [Unknown]
  - Fall [Unknown]
  - Incontinence [Unknown]
  - Diarrhoea [Unknown]
  - Influenza like illness [Unknown]
